FAERS Safety Report 6741135-8 (Version None)
Quarter: 2010Q2

REPORT INFORMATION
  Report Type: 
  Country: None (occurrence: None)
  Receive Date: 20100525
  Receipt Date: 20100525
  Transmission Date: 20101027
  Serious: Yes (Death)
  Sender: FDA-Public Use
  Company Number: None

PATIENT
  Age: 73 Year
  Sex: Male
  Weight: 84.5 kg

DRUGS (2)
  1. DEPOCYT [Suspect]
     Indication: METASTATIC NEOPLASM
     Dosage: 50MG BIWEEKLY INTRATRACHEAL
     Route: 039
     Dates: start: 20100325, end: 20100422
  2. SORAFENIB 200MG BAYER [Suspect]
     Indication: METASTATIC NEOPLASM
     Dosage: 400 MG TWICE DAILY PO
     Route: 048
     Dates: start: 20100325, end: 20100512

REACTIONS (1)
  - DEATH [None]
